FAERS Safety Report 24454609 (Version 2)
Quarter: 2024Q4

REPORT INFORMATION
  Report Type: Report from Study
  Country: FR (occurrence: FR)
  Receive Date: 20241017
  Receipt Date: 20241018
  Transmission Date: 20250114
  Serious: No
  Sender: ROCHE
  Company Number: FR-ROCHE-3459574

PATIENT
  Age: 66 Year
  Sex: Female

DRUGS (12)
  1. RITUXIMAB [Suspect]
     Active Substance: RITUXIMAB
     Indication: Sjogren^s syndrome
     Route: 042
  2. OBINUTUZUMAB [Concomitant]
     Active Substance: OBINUTUZUMAB
     Indication: Cryoglobulinaemia
     Dosage: AT WEEK 0
     Route: 042
  3. OBINUTUZUMAB [Concomitant]
     Active Substance: OBINUTUZUMAB
     Indication: Arthritis
  4. CYCLOPHOSPHAMIDE [Concomitant]
     Active Substance: CYCLOPHOSPHAMIDE
  5. MYCOPHENOLATE MOFETIL [Concomitant]
     Active Substance: MYCOPHENOLATE MOFETIL
  6. HYDROXYCHLOROQUINE [Concomitant]
     Active Substance: HYDROXYCHLOROQUINE
  7. NINTEDANIB [Concomitant]
     Active Substance: NINTEDANIB
  8. PREDNISONE [Concomitant]
     Active Substance: PREDNISONE
  9. NINTEDANIB [Concomitant]
     Active Substance: NINTEDANIB
  10. BELIMUMAB [Concomitant]
     Active Substance: BELIMUMAB
  11. AZATHIOPRINE [Concomitant]
     Active Substance: AZATHIOPRINE
  12. OFATUMUMAB [Concomitant]
     Active Substance: OFATUMUMAB

REACTIONS (1)
  - Drug specific antibody present [Unknown]
